FAERS Safety Report 5671090-3 (Version None)
Quarter: 2008Q1

REPORT INFORMATION
  Report Type: 
  Country: None (occurrence: None)
  Receive Date: 20080318
  Receipt Date: 20080311
  Transmission Date: 20080703
  Serious: Yes (Hospitalization)
  Sender: FDA-Public Use
  Company Number: JP-ASTRAZENECA-2008AP01034

PATIENT
  Age: 80 Year
  Sex: Male
  Weight: 46 kg

DRUGS (2)
  1. IRESSA [Suspect]
     Indication: LUNG ADENOCARCINOMA
     Route: 048
     Dates: start: 20060511, end: 20071220
  2. BIASAN [Concomitant]
     Route: 048
     Dates: start: 20060511, end: 20071220

REACTIONS (1)
  - EOSINOPHILIC PNEUMONIA [None]
